FAERS Safety Report 9388126 (Version 21)
Quarter: 2015Q2

REPORT INFORMATION
  Report Type: Spontaneous
  Country: US (occurrence: US)
  Receive Date: 20130708
  Receipt Date: 20150506
  Transmission Date: 20150821
  Serious: Yes (Death, Hospitalization, Disabling, Other)
  Sender: FDA-Public Use
  Company Number: US-GLAXOSMITHKLINE-A1029299A

PATIENT
  Age: 52 Year
  Sex: Male
  Weight: 55.9 kg

DRUGS (8)
  1. TRACLEER [Concomitant]
     Active Substance: BOSENTAN\BOSENTAN MONOHYDRATE
  2. FLOLAN [Suspect]
     Active Substance: EPOPROSTENOL SODIUM
     Indication: COR PULMONALE CHRONIC
     Dosage: 100 NG/KG/MIN, CONC: 120,000 NG/ML, VIAL STRENGTH: 1.5 MG100 NG/KG/MIN, CONC: 120,000 NG/ML, PU[...]
     Route: 042
     Dates: start: 20080801, end: 20150407
  3. FLOLAN [Suspect]
     Active Substance: EPOPROSTENOL SODIUM
     Indication: HIV INFECTION
     Dosage: UNK
     Dates: start: 20080811
  4. FLOLAN [Suspect]
     Active Substance: EPOPROSTENOL SODIUM
     Dosage: 56 NG/KG/MIN, CO
  5. TRAZODONE [Suspect]
     Active Substance: TRAZODONE HYDROCHLORIDE
     Indication: PRODUCT USED FOR UNKNOWN INDICATION
     Route: 065
  6. FLOLAN [Suspect]
     Active Substance: EPOPROSTENOL SODIUM
     Indication: PULMONARY HYPERTENSION
     Dosage: UNK
     Dates: start: 20080811
  7. FLOLAN [Suspect]
     Active Substance: EPOPROSTENOL SODIUM
     Dosage: 54 NG/KG/MIN, 60,000 NG/ML, 1.5 MG CO
  8. ADCIRCA [Concomitant]
     Active Substance: TADALAFIL

REACTIONS (22)
  - Fluid retention [Unknown]
  - Neoplasm malignant [Unknown]
  - Tachycardia [Recovered/Resolved]
  - Weight decreased [Recovered/Resolved]
  - Gallbladder disorder [Recovered/Resolved]
  - Malaise [Unknown]
  - Cholecystectomy [Recovered/Resolved]
  - Arthralgia [Unknown]
  - Incorrect dose administered [Unknown]
  - Speech disorder [Recovered/Resolved]
  - Lethargy [Unknown]
  - Hypotension [Unknown]
  - Death [Fatal]
  - Device related infection [Unknown]
  - Blood pressure abnormal [Recovered/Resolved]
  - Fatigue [Unknown]
  - Somnolence [Unknown]
  - Candida infection [Unknown]
  - Central venous catheterisation [Unknown]
  - Dyspnoea [Unknown]
  - Dysarthria [Unknown]
  - Diarrhoea [Unknown]

NARRATIVE: CASE EVENT DATE: 20130628
